FAERS Safety Report 13284379 (Version 9)
Quarter: 2018Q4

REPORT INFORMATION
  Report Type: Spontaneous
  Country: IT (occurrence: IT)
  Receive Date: 20170301
  Receipt Date: 20181218
  Transmission Date: 20190204
  Serious: Yes (Hospitalization, Other)
  Sender: FDA-Public Use
  Company Number: IT-PFIZER INC-2017086818

PATIENT
  Age: 59 Year
  Sex: Male

DRUGS (6)
  1. CILASTATIN/IMIPENEM [Suspect]
     Active Substance: CILASTATIN SODIUM\IMIPENEM
     Indication: ANTIBIOTIC THERAPY
     Dosage: UNK
  2. BECLOMETHASONE [Concomitant]
     Active Substance: BECLOMETHASONE
     Indication: CROHN^S DISEASE
     Dosage: UNK
  3. METFORMIN HCL [Suspect]
     Active Substance: METFORMIN HYDROCHLORIDE
     Indication: DIABETES MELLITUS
     Dosage: UNK
  4. ATENOLOL. [Concomitant]
     Active Substance: ATENOLOL
     Indication: HYPERTENSION
     Dosage: UNK
  5. CHLORTHALIDONE. [Concomitant]
     Active Substance: CHLORTHALIDONE
     Indication: HYPERTENSION
     Dosage: UNK
  6. METRONIDAZOLE. [Concomitant]
     Active Substance: METRONIDAZOLE
     Indication: ANTIBIOTIC THERAPY
     Dosage: UNK

REACTIONS (2)
  - Hypocalcaemia [Recovered/Resolved]
  - Hyponatraemia [Recovered/Resolved]
